FAERS Safety Report 7463202-6 (Version None)
Quarter: 2011Q2

REPORT INFORMATION
  Report Type: 
  Country: None (occurrence: None)
  Receive Date: 20110506
  Receipt Date: 20110426
  Transmission Date: 20111010
  Serious: Yes (Hospitalization)
  Sender: FDA-Public Use
  Company Number: FR-CELGENEUS-056-21880-11043397

PATIENT
  Sex: Female
  Weight: 75 kg

DRUGS (2)
  1. CORTANCYL [Concomitant]
     Dosage: 40 MILLIGRAM
     Route: 048
     Dates: start: 20110420, end: 20110420
  2. REVLIMID [Suspect]
     Dosage: 10 MILLIGRAM
     Route: 048
     Dates: start: 20110207, end: 20110403

REACTIONS (4)
  - PYREXIA [None]
  - URINARY TRACT INFECTION [None]
  - HYPOCALCAEMIA [None]
  - GENERAL PHYSICAL HEALTH DETERIORATION [None]
